FAERS Safety Report 5975743-9 (Version None)
Quarter: 2008Q4

REPORT INFORMATION
  Report Type: 
  Country: None (occurrence: None)
  Receive Date: 20081202
  Receipt Date: 20081124
  Transmission Date: 20090506
  Serious: Yes (Other)
  Sender: FDA-Public Use
  Company Number: DK-AVENTIS-200821027GDDC

PATIENT
  Age: 43 Year
  Sex: Female

DRUGS (5)
  1. TAXOTERE [Suspect]
     Route: 042
     Dates: start: 20081110, end: 20081110
  2. PREDNISOLONE [Concomitant]
     Dosage: DOSE: UNK
  3. SOLU-MEDROL [Concomitant]
     Dosage: DOSE: UNK
  4. ZANTAC [Concomitant]
     Dosage: DOSE: UNK
  5. TAVEGYL [Concomitant]
     Dosage: DOSE: UNK

REACTIONS (4)
  - BLINDNESS [None]
  - DEAFNESS [None]
  - HYPERSENSITIVITY [None]
  - VISUAL IMPAIRMENT [None]
